FAERS Safety Report 25596192 (Version 2)
Quarter: 2025Q3

REPORT INFORMATION
  Report Type: Spontaneous
  Country: US (occurrence: US)
  Receive Date: 20250723
  Receipt Date: 20250807
  Transmission Date: 20251020
  Serious: No
  Sender: SANOFI AVENTIS
  Company Number: US-SA-2025SA210551

PATIENT
  Age: 86 Year
  Sex: Female

DRUGS (4)
  1. DUPIXENT [Suspect]
     Active Substance: DUPILUMAB
     Indication: Asthma
     Route: 058
     Dates: start: 20250417, end: 20250417
  2. DUPIXENT [Suspect]
     Active Substance: DUPILUMAB
     Indication: Asthma
     Dosage: 300 MG, QOW
     Route: 058
     Dates: start: 20250506
  3. DUPIXENT [Suspect]
     Active Substance: DUPILUMAB
     Dates: start: 20250626
  4. DUPIXENT [Suspect]
     Active Substance: DUPILUMAB
     Dates: start: 20250529

REACTIONS (7)
  - Nausea [Unknown]
  - Muscle spasms [Unknown]
  - Asthenia [Unknown]
  - Blood pressure abnormal [Unknown]
  - Gait disturbance [Unknown]
  - Dizziness [Unknown]
  - Inappropriate schedule of product administration [Unknown]

NARRATIVE: CASE EVENT DATE: 20250101
